FAERS Safety Report 6039562-X (Version None)
Quarter: 2009Q1

REPORT INFORMATION
  Report Type: 
  Country: None (occurrence: None)
  Receive Date: 20090116
  Receipt Date: 20090109
  Transmission Date: 20090719
  Serious: Yes (Other)
  Sender: FDA-Public Use
  Company Number: DE-JNJFOC-20081203858

PATIENT
  Sex: Female

DRUGS (6)
  1. RISPERDAL CONSTA [Suspect]
     Indication: SCHIZOAFFECTIVE DISORDER
     Route: 030
  2. PULMICORT-100 [Concomitant]
     Indication: BRONCHITIS CHRONIC
     Route: 055
  3. SYMBICORT [Concomitant]
     Indication: BRONCHITIS CHRONIC
     Route: 055
  4. ERGENYL CHRONO [Concomitant]
     Indication: SCHIZOAFFECTIVE DISORDER
     Route: 048
  5. SEROQUEL [Concomitant]
     Indication: SCHIZOAFFECTIVE DISORDER
     Route: 048
  6. ATACAND [Concomitant]
     Indication: HYPERTENSION
     Route: 048

REACTIONS (1)
  - PLEURAL EFFUSION [None]
